FAERS Safety Report 7445425-5 (Version None)
Quarter: 2011Q2

REPORT INFORMATION
  Report Type: 
  Country: None (occurrence: None)
  Receive Date: 20110429
  Receipt Date: 20110414
  Transmission Date: 20111010
  Serious: No
  Sender: FDA-Public Use
  Company Number: US-JNJFOC-20110406509

PATIENT
  Sex: Male

DRUGS (3)
  1. RISPERDAL [Suspect]
     Indication: SCHIZOPHRENIA
  2. INVEGA SUSTENNA [Suspect]
     Indication: SCHIZOPHRENIA
     Route: 065
  3. INVEGA [Suspect]
     Indication: SCHIZOPHRENIA

REACTIONS (7)
  - THERAPEUTIC RESPONSE DECREASED [None]
  - IRRITABILITY [None]
  - CONFUSIONAL STATE [None]
  - MEMORY IMPAIRMENT [None]
  - PRODUCT QUALITY ISSUE [None]
  - DRUG ADMINISTRATION ERROR [None]
  - MUSCLE SPASMS [None]
